FAERS Safety Report 15828486 (Version 1)
Quarter: 2019Q1

REPORT INFORMATION
  Report Type: Spontaneous
  Country: US (occurrence: US)
  Receive Date: 20190115
  Receipt Date: 20190115
  Transmission Date: 20190417
  Serious: No
  Sender: FDA-Public Use
  Company Number: US-ALLERGAN-1809171US

PATIENT
  Sex: Female

DRUGS (1)
  1. RESTASIS [Suspect]
     Active Substance: CYCLOSPORINE
     Indication: DRY EYE
     Dosage: 1 GTT, BID
     Route: 047
     Dates: start: 2015, end: 20180224

REACTIONS (8)
  - Eye infection [Recovering/Resolving]
  - Photophobia [Recovered/Resolved]
  - Cataract [Unknown]
  - Eye pain [Recovered/Resolved]
  - Drug ineffective [Unknown]
  - Ulcerative keratitis [Recovered/Resolved]
  - Visual impairment [Unknown]
  - Foreign body sensation in eyes [Recovered/Resolved]

NARRATIVE: CASE EVENT DATE: 2016
